FAERS Safety Report 21321706 (Version 2)
Quarter: 2022Q3

REPORT INFORMATION
  Report Type: Report from Study
  Country: US (occurrence: US)
  Receive Date: 20220912
  Receipt Date: 20220913
  Transmission Date: 20221027
  Serious: Yes (Other)
  Sender: FDA-Public Use
  Company Number: US-NOVARTISPH-NVSC2022US204129

PATIENT
  Sex: Female

DRUGS (2)
  1. ENTRESTO [Suspect]
     Active Substance: SACUBITRIL\VALSARTAN
     Indication: Cardiomegaly
     Dosage: 1 DOSAGE FORM, BID (97/103 MG)
     Route: 048
     Dates: start: 20210918
  2. ENTRESTO [Suspect]
     Active Substance: SACUBITRIL\VALSARTAN
     Indication: Cardiac failure
     Route: 048

REACTIONS (5)
  - Pulmonary oedema [Unknown]
  - Dizziness [Unknown]
  - Fluid retention [Unknown]
  - Weight decreased [Unknown]
  - Somnolence [Unknown]
